FAERS Safety Report 16518109 (Version 4)
Quarter: 2019Q4

REPORT INFORMATION
  Report Type: Report from Study
  Country: JP (occurrence: JP)
  Receive Date: 20190702
  Receipt Date: 20191127
  Transmission Date: 20200122
  Serious: Yes (Hospitalization, Disabling)
  Sender: FDA-Public Use
  Company Number: JP-PFIZER INC-2019250108

PATIENT
  Age: 45 Year
  Sex: Female

DRUGS (5)
  1. LIPIDIL [Concomitant]
     Active Substance: FENOFIBRATE
     Indication: BLOOD TRIGLYCERIDES INCREASED
     Dosage: 80 MG, 1X/DAY
     Route: 048
     Dates: start: 20190605, end: 20190626
  2. CRESTOR [Concomitant]
     Active Substance: ROSUVASTATIN CALCIUM
     Indication: BLOOD TRIGLYCERIDES INCREASED
     Dosage: 2.5 MG, 1X/DAY
     Route: 048
     Dates: start: 20190610, end: 20190626
  3. SENNOSIDE [SENNOSIDE A+B] [Concomitant]
     Active Substance: SENNOSIDES A AND B
     Indication: CONSTIPATION
     Dosage: 24 MG, 1X/DAY
     Route: 048
     Dates: start: 20181206, end: 20190626
  4. LORLATINIB [Suspect]
     Active Substance: LORLATINIB
     Indication: NON-SMALL CELL LUNG CANCER
     Dosage: 100 MG, 1X/DAY
     Route: 048
     Dates: start: 20190529, end: 20190619
  5. ELIQUIS [Concomitant]
     Active Substance: APIXABAN
     Indication: DEEP VEIN THROMBOSIS
     Dosage: 5 MG, 2X/DAY
     Route: 048
     Dates: start: 20181030, end: 20190626

REACTIONS (9)
  - Proteinuria [Recovered/Resolved with Sequelae]
  - Blood triglycerides increased [Recovering/Resolving]
  - Haematuria [Recovered/Resolved with Sequelae]
  - Glomerular filtration rate decreased [Unknown]
  - Tachycardia [Not Recovered/Not Resolved]
  - Dizziness [Recovered/Resolved]
  - Renal impairment [Recovered/Resolved with Sequelae]
  - Blood cholesterol increased [Unknown]
  - Fibrin D dimer increased [Not Recovered/Not Resolved]

NARRATIVE: CASE EVENT DATE: 2019
